FAERS Safety Report 20893585 (Version 1)
Quarter: 2022Q2

REPORT INFORMATION
  Report Type: Spontaneous
  Country: JP (occurrence: JP)
  Receive Date: 20220531
  Receipt Date: 20220531
  Transmission Date: 20220721
  Serious: Yes (Other)
  Sender: FDA-Public Use
  Company Number: JP-ALKEM LABORATORIES LIMITED-JP-ALKEM-2022-05054

PATIENT
  Age: 23 Year
  Sex: Male

DRUGS (2)
  1. SILDENAFIL [Suspect]
     Active Substance: SILDENAFIL
     Indication: Product used for unknown indication
     Dosage: 100 MILLIGRAM, DAILY OVER 2 MONTHS
     Route: 065
  2. SILDENAFIL [Suspect]
     Active Substance: SILDENAFIL
     Dosage: 2000 MILLIGRAM; 20 SILDENAFIL (100 MG) TABLETS
     Route: 065

REACTIONS (6)
  - Colour blindness acquired [Unknown]
  - Suicide attempt [Unknown]
  - Overdose [Unknown]
  - Visual field defect [Not Recovered/Not Resolved]
  - Vision blurred [Not Recovered/Not Resolved]
  - Photophobia [Unknown]
